FAERS Safety Report 5532212-8 (Version None)
Quarter: 2007Q4

REPORT INFORMATION
  Report Type: 
  Country: None (occurrence: None)
  Receive Date: 20071203
  Receipt Date: 20071130
  Transmission Date: 20080405
  Serious: Yes (Life-Threatening)
  Sender: FDA-Public Use
  Company Number: JP-ASTRAZENECA-2007AP07631

PATIENT
  Age: 47 Year
  Sex: Female
  Weight: 50 kg

DRUGS (2)
  1. DIPRIVAN [Suspect]
     Indication: SEDATION
     Route: 042
  2. DIPRIVAN [Suspect]
     Dosage: INTRAVENOUS BOLUS
     Route: 042

REACTIONS (7)
  - ACIDOSIS [None]
  - CARDIAC ARREST [None]
  - MYOGLOBIN BLOOD INCREASED [None]
  - MYOGLOBIN URINE PRESENT [None]
  - PULMONARY OEDEMA [None]
  - RESPIRATORY FAILURE [None]
  - RHABDOMYOLYSIS [None]
